FAERS Safety Report 16027243 (Version 2)
Quarter: 2019Q3

REPORT INFORMATION
  Report Type: Report from Study
  Country: None (occurrence: US)
  Receive Date: 20190303
  Receipt Date: 20190816
  Transmission Date: 20191004
  Serious: Yes (Hospitalization, Other)
  Sender: FDA-Public Use
  Company Number: US-ABBVIE-19K-163-2683940-00

PATIENT
  Sex: Female
  Weight: 118.04 kg

DRUGS (1)
  1. HUMIRA [Suspect]
     Active Substance: ADALIMUMAB
     Indication: PSORIATIC ARTHROPATHY
     Route: 058

REACTIONS (10)
  - Confusional state [Unknown]
  - Pneumonia [Recovered/Resolved]
  - Cardiac failure [Unknown]
  - Pain [Not Recovered/Not Resolved]
  - Infection [Unknown]
  - Pain [Recovered/Resolved]
  - Mental status changes [Recovering/Resolving]
  - Drug ineffective [Unknown]
  - Sepsis [Recovered/Resolved]
  - Cardiac valve disease [Unknown]

NARRATIVE: CASE EVENT DATE: 2019
